FAERS Safety Report 8399826-1 (Version None)
Quarter: 2012Q2

REPORT INFORMATION
  Report Type: 
  Country: None (occurrence: None)
  Receive Date: 20120531
  Receipt Date: 20120528
  Transmission Date: 20120825
  Serious: Yes (Other)
  Sender: FDA-Public Use
  Company Number: JP-PFIZER INC-2012128264

PATIENT
  Age: 85 Year
  Sex: Male

DRUGS (5)
  1. OPALMON [Concomitant]
     Dosage: UNK
     Route: 048
  2. LOXONIN [Concomitant]
     Dosage: UNK
     Route: 048
  3. VITAMIN B12 [Concomitant]
     Dosage: UNK
     Route: 048
  4. LYRICA [Suspect]
     Dosage: 300 MG, 1X/DAY
     Route: 048
     Dates: start: 20110401, end: 20120525
  5. LEVOFLOXACIN [Concomitant]
     Dosage: UNK
     Route: 048

REACTIONS (2)
  - DIZZINESS [None]
  - FALL [None]
